FAERS Safety Report 7299276-5 (Version None)
Quarter: 2011Q1

REPORT INFORMATION
  Report Type: 
  Country: None (occurrence: None)
  Receive Date: 20110217
  Receipt Date: 20110204
  Transmission Date: 20110831
  Serious: Yes (Death, Life-Threatening, Hospitalization)
  Sender: FDA-Public Use
  Company Number: ES-ELI_LILLY_AND_COMPANY-ES201009005874

PATIENT
  Age: 66 Year
  Sex: Female

DRUGS (4)
  1. FOLIC ACID [Concomitant]
  2. CISPLATIN [Concomitant]
     Dosage: UNK, UNKNOWN
     Route: 065
  3. ALIMTA [Suspect]
     Indication: LUNG ADENOCARCINOMA
     Dosage: 500 MG/M2, UNKNOWN
     Route: 042
     Dates: start: 20100514, end: 20100514
  4. VITAMIN B-12 [Concomitant]

REACTIONS (7)
  - TOXIC SKIN ERUPTION [None]
  - THROMBOCYTOPENIA [None]
  - NEOPLASM MALIGNANT [None]
  - OESOPHAGITIS [None]
  - GASTROINTESTINAL HAEMORRHAGE [None]
  - GASTROENTERITIS [None]
  - ANAEMIA [None]
